FAERS Safety Report 7278747-1 (Version None)
Quarter: 2010Q4

REPORT INFORMATION
  Report Type: 
  Country: None (occurrence: None)
  Receive Date: 20101201
  Receipt Date: 20091221
  Transmission Date: 20110411
  Serious: Yes (Hospitalization, Other)
  Sender: FDA-Public Use
  Company Number: 290194

PATIENT
  Age: 64 Year
  Sex: Female
  Weight: 91.2 kg

DRUGS (18)
  1. NOVOLOG [Suspect]
     Indication: TYPE 2 DIABETES MELLITUS
     Dosage: 10 IU WITH EACH MEAL PLUS SLIDING SCALE, SUBCUTANEOUS
     Route: 058
     Dates: end: 20090731
  2. NOVOFINE 30 [Concomitant]
  3. LANTUS [Concomitant]
  4. ST. JOHN'S WORT (HYPERICUM PERFORATUM) [Concomitant]
  5. VITAMIN C /00008001/ (ASCORBIC ACID) [Concomitant]
  6. AVALIDE [Concomitant]
  7. CITRACEL-D (CALCIUM CITRATE, COLECALCIFEROL) [Concomitant]
  8. BILBERRY /01397601/ (VACCINIUM MYRTILLUS) [Concomitant]
  9. BENADRYL [Concomitant]
  10. VITAMIN E /00110501 (TOCOPHEROL) [Concomitant]
  11. ERGOCALCIFEROL [Concomitant]
  12. SERTRALINE HYDROCHLORIDE [Concomitant]
  13. VITAMIN B6 [Concomitant]
  14. VITAMIN B12 [Concomitant]
  15. TOPROL-XL [Concomitant]
  16. GABAPENTIN [Concomitant]
  17. ARIMIDEX [Concomitant]
  18. HYDROCODONE BITARTRATE AND ACETAMINOPHEN (HYDROCODONE BITARTRATE, PARA [Concomitant]

REACTIONS (2)
  - DEVICE BREAKAGE [None]
  - HYPERGLYCAEMIA [None]
